FAERS Safety Report 17091120 (Version 1)
Quarter: 2019Q4

REPORT INFORMATION
  Report Type: Spontaneous
  Country: DE (occurrence: DE)
  Receive Date: 20191129
  Receipt Date: 20191129
  Transmission Date: 20200122
  Serious: Yes (Other)
  Sender: FDA-Public Use
  Company Number: DE-AMGEN-DEUSP2019194094

PATIENT
  Age: 7 Year
  Sex: Male

DRUGS (1)
  1. ADALIMUMAB [Suspect]
     Active Substance: ADALIMUMAB
     Indication: PRODUCT USED FOR UNKNOWN INDICATION
     Dosage: 40 MILLIGRAM
     Route: 058
     Dates: end: 20191106

REACTIONS (5)
  - Arthralgia [Unknown]
  - Osteosarcoma [Not Recovered/Not Resolved]
  - Arthritis [Unknown]
  - Osteonecrosis [Unknown]
  - Joint effusion [Unknown]

NARRATIVE: CASE EVENT DATE: 20191106
